FAERS Safety Report 4760174-X (Version None)
Quarter: 2005Q3

REPORT INFORMATION
  Report Type: 
  Country: None (occurrence: None)
  Receive Date: 20050831
  Receipt Date: 20050831
  Transmission Date: 20060218
  Serious: Yes (Other)
  Sender: FDA-Public Use
  Company Number: None

PATIENT
  Age: 68 Year
  Sex: Male

DRUGS (1)
  1. TRIAD RADIATION STERILIZED STERILE LUBRICATING JELLY [Suspect]
     Indication: INTUBATION
     Dosage: AMPLE TOPICAL USE
     Route: 061
     Dates: start: 20050816

REACTIONS (7)
  - ERYTHEMA [None]
  - EYE SWELLING [None]
  - HYPOAESTHESIA [None]
  - HYPOAESTHESIA ORAL [None]
  - NASAL CONGESTION [None]
  - PAIN OF SKIN [None]
  - SWELLING FACE [None]
